FAERS Safety Report 9269291 (Version 1)
Quarter: 2013Q2

REPORT INFORMATION
  Report Type: Spontaneous
  Country: FR (occurrence: FR)
  Receive Date: 20130503
  Receipt Date: 20130503
  Transmission Date: 20140414
  Serious: Yes (Death, Hospitalization)
  Sender: FDA-Public Use
  Company Number: FR-ROCHE-1219658

PATIENT
  Age: 68 Year
  Sex: Female

DRUGS (7)
  1. XELODA [Suspect]
     Indication: PRODUCT USED FOR UNKNOWN INDICATION
     Route: 048
     Dates: start: 20130109, end: 20130115
  2. SKENAN [Concomitant]
     Route: 048
     Dates: start: 201210
  3. ACTISKENAN [Concomitant]
     Route: 048
     Dates: start: 201210
  4. LYRICA [Concomitant]
     Route: 048
     Dates: start: 201210
  5. INNOHEP [Concomitant]
     Route: 058
     Dates: start: 201211
  6. CORTANCYL [Concomitant]
     Route: 048
     Dates: start: 201209
  7. CLASTOBAN [Concomitant]
     Route: 048
     Dates: start: 201211

REACTIONS (3)
  - General physical health deterioration [Fatal]
  - Diarrhoea [Fatal]
  - Dehydration [Fatal]
